FAERS Safety Report 7923497-9 (Version None)
Quarter: 2011Q4

REPORT INFORMATION
  Report Type: 
  Country: None (occurrence: None)
  Receive Date: 20111117
  Receipt Date: 20110203
  Transmission Date: 20120403
  Serious: No
  Sender: FDA-Public Use
  Company Number: US-AMGEN-USASP2011006829

PATIENT
  Age: 71 Year
  Sex: Female

DRUGS (2)
  1. ENBREL [Suspect]
     Indication: PSORIASIS
     Dosage: 50 MG, QWK
     Dates: start: 20100615, end: 20110101
  2. ENBREL [Suspect]
     Indication: PSORIATIC ARTHROPATHY

REACTIONS (8)
  - ABDOMINAL PAIN UPPER [None]
  - EAR INFECTION [None]
  - OEDEMA PERIPHERAL [None]
  - DIARRHOEA [None]
  - PAIN IN EXTREMITY [None]
  - ABDOMINAL RIGIDITY [None]
  - SINUSITIS [None]
  - CONSTIPATION [None]
